FAERS Safety Report 13203786 (Version 2)
Quarter: 2020Q1

REPORT INFORMATION
  Report Type: Spontaneous
  Country: BR (occurrence: BR)
  Receive Date: 20170209
  Receipt Date: 20200205
  Transmission Date: 20200409
  Serious: Yes (Other)
  Sender: FDA-Public Use
  Company Number: BR-JAZZ-2017-BR-001580

PATIENT
  Age: 2 Year
  Weight: 15 kg

DRUGS (4)
  1. DOXORUBICIN PFIZER [Suspect]
     Active Substance: DOXORUBICIN
     Indication: ACUTE LYMPHOCYTIC LEUKAEMIA
     Dosage: LATE CONSOLIDATION PHASE CHEMOTHERAPY
     Route: 042
     Dates: end: 20160801
  2. ASPARAGINASE [Suspect]
     Active Substance: ASPARAGINASE
     Indication: ACUTE LYMPHOCYTIC LEUKAEMIA
     Dosage: LATE CONSOLIDATION PHASE CHEMOTHERAPY
     Route: 030
     Dates: end: 20160810
  3. BACTRIM [Concomitant]
     Active Substance: SULFAMETHOXAZOLE\TRIMETHOPRIM
     Indication: ACUTE LYMPHOCYTIC LEUKAEMIA
     Dosage: LATE CONSOLIDATION PHASE CHEMOTHERAPY
     Route: 048
     Dates: end: 20160815
  4. VINCRISTINE [Suspect]
     Active Substance: VINCRISTINE
     Indication: ACUTE LYMPHOCYTIC LEUKAEMIA
     Dosage: LATE CONSOLIDATION PHASE CHEMOTHERAPY
     Route: 042
     Dates: end: 20160809

REACTIONS (2)
  - Leukopenia [Recovered/Resolved]
  - Neutropenia [Recovered/Resolved]

NARRATIVE: CASE EVENT DATE: 20160816
